FAERS Safety Report 8525810-0 (Version None)
Quarter: 2012Q3

REPORT INFORMATION
  Report Type: 
  Country: None (occurrence: None)
  Receive Date: 20120720
  Receipt Date: 20120710
  Transmission Date: 20120928
  Serious: Yes (Hospitalization, Disabling)
  Sender: FDA-Public Use
  Company Number: US-009507513-1207USA004996

PATIENT

DRUGS (13)
  1. LYRICA [Concomitant]
  2. SAVELLA [Concomitant]
  3. CEREFOLIN [Concomitant]
  4. HYDROCODONE BITARTRATE [Concomitant]
  5. HYDROCHLOROTHIAZIDE [Suspect]
  6. ROPINIROLE [Concomitant]
  7. ZEGERID [Concomitant]
  8. PRINIVIL [Suspect]
  9. UBIDECARENONE [Concomitant]
  10. ZANAFLEX [Concomitant]
  11. LORTAB [Concomitant]
  12. FLECTOR [Concomitant]
  13. MAXALT [Suspect]

REACTIONS (10)
  - SYSTEMIC LUPUS ERYTHEMATOSUS [None]
  - PAIN [None]
  - VITAMIN B12 DEFICIENCY [None]
  - DEPRESSION [None]
  - MALAISE [None]
  - MEMORY IMPAIRMENT [None]
  - FATIGUE [None]
  - COGNITIVE DISORDER [None]
  - FALL [None]
  - FIBROMYALGIA [None]
